FAERS Safety Report 24321070 (Version 1)
Quarter: 2024Q3

REPORT INFORMATION
  Report Type: Spontaneous
  Country: US (occurrence: US)
  Receive Date: 20240915
  Receipt Date: 20240915
  Transmission Date: 20241016
  Serious: No
  Sender: AMGEN
  Company Number: US-AMGEN-USASP2024179939

PATIENT
  Age: 54 Year
  Sex: Male
  Weight: 71.1 kg

DRUGS (1)
  1. NPLATE [Suspect]
     Active Substance: ROMIPLOSTIM
     Indication: Thrombocytopenia
     Dosage: DOSE ORDERED: 100 MCG (DOSE REQUESTED: 125 MCG)
     Route: 065

REACTIONS (2)
  - Refusal of treatment by patient [Unknown]
  - Off label use [Unknown]

NARRATIVE: CASE EVENT DATE: 20240805
